FAERS Safety Report 4280108-4 (Version None)
Quarter: 2004Q1

REPORT INFORMATION
  Report Type: 
  Country: None (occurrence: None)
  Receive Date: 20040126
  Receipt Date: 20031219
  Transmission Date: 20041129
  Serious: Yes (Death, Hospitalization, Other)
  Sender: FDA-Public Use
  Company Number: M2004.6855

PATIENT
  Age: 29 Year
  Sex: Male
  Weight: 43 kg

DRUGS (1)
  1. RIMACTANE [Suspect]
     Indication: PULMONARY TUBERCULOSIS
     Dosage: 3 TABLETS DAILY, ORAL
     Route: 048
     Dates: start: 20030325, end: 20030401

REACTIONS (3)
  - DISEASE PROGRESSION [None]
  - HEPATIC CIRRHOSIS [None]
  - HEPATITIS [None]
